FAERS Safety Report 16595763 (Version 6)
Quarter: 2021Q3

REPORT INFORMATION
  Report Type: Report from Study
  Country: US (occurrence: US)
  Receive Date: 20190719
  Receipt Date: 20210728
  Transmission Date: 20211014
  Serious: Yes (Death)
  Sender: FDA-Public Use
  Company Number: US-ROCHE-2358331

PATIENT
  Age: 65 Year
  Sex: Male
  Weight: 83.5 kg

DRUGS (11)
  1. ATEZOLIZUMAB. [Suspect]
     Active Substance: ATEZOLIZUMAB
     Indication: PANCREATIC CARCINOMA METASTATIC
     Dosage: ON DAY 1 OF EACH 21?DAY CYCLE.?MOST RECENT DOSE (1200 MG) ON 26/JUN/2019
     Route: 042
     Dates: start: 20181105
  2. NEBIVOLOL. [Concomitant]
     Active Substance: NEBIVOLOL
     Indication: HYPERTENSION
     Dates: start: 2013
  3. CABERGOLINE. [Concomitant]
     Active Substance: CABERGOLINE
     Indication: PITUITARY TUMOUR BENIGN
     Dates: start: 2017
  4. MIRTAZAPINE. [Concomitant]
     Active Substance: MIRTAZAPINE
     Indication: DECREASED APPETITE
     Route: 048
     Dates: start: 20181105
  5. PIROXICAM. [Concomitant]
     Active Substance: PIROXICAM
     Indication: PREMEDICATION
     Dosage: OTHER
     Route: 048
     Dates: start: 20181105
  6. ENOXAPARIN [Concomitant]
     Active Substance: ENOXAPARIN
     Indication: PREMEDICATION
     Route: 058
     Dates: start: 20181105
  7. MIRTAZAPINE. [Concomitant]
     Active Substance: MIRTAZAPINE
     Indication: INSOMNIA
  8. OLMESARTAN MEDOXOMIL. [Concomitant]
     Active Substance: OLMESARTAN MEDOXOMIL
     Indication: HYPERTENSION
     Dates: start: 2013
  9. CABERGOLINE. [Concomitant]
     Active Substance: CABERGOLINE
     Indication: HYPERPROLACTINAEMIA
  10. OMEPRAZOLE. [Concomitant]
     Active Substance: OMEPRAZOLE
     Indication: GASTROOESOPHAGEAL REFLUX DISEASE
     Dates: start: 2016
  11. PEGPH20 [Suspect]
     Active Substance: PEGVORHYALURONIDASE ALFA
     Indication: PANCREATIC CARCINOMA METASTATIC
     Dosage: ON DAYS 1, 8 AND 15 OF EACH 21?DAY CYCLE.?MOST RECENT DOSE (238) ON 10/JUL/2019
     Route: 042
     Dates: start: 20181105

REACTIONS (1)
  - Death [Fatal]

NARRATIVE: CASE EVENT DATE: 20190714
